FAERS Safety Report 7462981-1 (Version None)
Quarter: 2011Q2

REPORT INFORMATION
  Report Type: 
  Country: None (occurrence: None)
  Receive Date: 20110506
  Receipt Date: 20110428
  Transmission Date: 20111010
  Serious: Yes (Other)
  Sender: FDA-Public Use
  Company Number: PHHY2010PL87827

PATIENT
  Age: 26 Year
  Sex: Male

DRUGS (7)
  1. FUSAFUNGINE [Suspect]
     Indication: UPPER RESPIRATORY TRACT INFECTION
     Dosage: UNK
  2. GENTAMICIN [Suspect]
     Indication: UPPER RESPIRATORY TRACT INFECTION
     Dosage: 3 DF, 12 HOURS APART
     Route: 030
  3. DEXAMETHASONE [Suspect]
     Dosage: 8 MG, TID
  4. DOXYCYCLINE [Suspect]
     Indication: UPPER RESPIRATORY TRACT INFECTION
     Dosage: UNK
  5. SULFASALAZINE [Suspect]
     Indication: COLITIS ULCERATIVE
     Dosage: UNK
  6. CEFOTAXIME [Suspect]
     Indication: UPPER RESPIRATORY TRACT INFECTION
     Dosage: UNK
  7. CEFACLOR [Suspect]
     Indication: UPPER RESPIRATORY TRACT INFECTION
     Dosage: UNK

REACTIONS (21)
  - PHOTOPHOBIA [None]
  - STAPHYLOCOCCAL INFECTION [None]
  - ACINETOBACTER TEST POSITIVE [None]
  - TOXIC EPIDERMAL NECROLYSIS [None]
  - BLEPHAROSPASM [None]
  - KERATOCONJUNCTIVITIS SICCA [None]
  - MUCOSAL EROSION [None]
  - C-REACTIVE PROTEIN INCREASED [None]
  - ERYTHEMA [None]
  - DERMATITIS BULLOUS [None]
  - PAIN [None]
  - ORBITAL OEDEMA [None]
  - SKIN INFECTION [None]
  - RESPIRATORY TRACT INFECTION [None]
  - RESPIRATORY FAILURE [None]
  - TRICHIASIS [None]
  - URINARY TRACT INFECTION [None]
  - SEPSIS [None]
  - NIKOLSKY'S SIGN [None]
  - ALANINE AMINOTRANSFERASE INCREASED [None]
  - ENTEROCOCCAL INFECTION [None]
